FAERS Safety Report 5807827-X (Version None)
Quarter: 2008Q3

REPORT INFORMATION
  Report Type: 
  Country: None (occurrence: None)
  Receive Date: 20080711
  Receipt Date: 20080701
  Transmission Date: 20090109
  Serious: No
  Sender: FDA-Public Use
  Company Number: US-BOEHRINGER INGELHEIM GMBH, GERMANY-2008-BP-10188BP

PATIENT
  Age: 71 Year
  Sex: Male

DRUGS (2)
  1. FLOMAX [Suspect]
     Indication: BENIGN PROSTATIC HYPERPLASIA
     Route: 048
     Dates: start: 19970101
  2. LISINOPRIL [Suspect]
     Indication: HYPERTENSION
     Dates: start: 20080101

REACTIONS (2)
  - DIZZINESS [None]
  - NASAL CONGESTION [None]
